FAERS Safety Report 10932838 (Version 1)
Quarter: 2015Q1

REPORT INFORMATION
  Report Type: Spontaneous
  Country: US (occurrence: None)
  Receive Date: 20150212
  Receipt Date: 20150212
  Transmission Date: 20150721
  Serious: No
  Sender: FDA-Public Use
  Company Number: TPA2011A02011

PATIENT
  Age: 50 Year
  Sex: Male
  Weight: 113.4 kg

DRUGS (3)
  1. PERCOCET (PARACETAMOL, OXYCODONE, HYDROCHLORIDE) [Concomitant]
  2. ULORIC [Suspect]
     Active Substance: FEBUXOSTAT
     Indication: GOUT
     Route: 048
     Dates: start: 20110324
  3. COLCRYS [Concomitant]
     Active Substance: COLCHICINE

REACTIONS (1)
  - Gout [None]
